FAERS Safety Report 9833011 (Version 2)
Quarter: 2014Q2

REPORT INFORMATION
  Report Type: Spontaneous
  Country: US (occurrence: US)
  Receive Date: 20140121
  Receipt Date: 20140410
  Transmission Date: 20141212
  Serious: Yes (Congenital Anomaly, Other)
  Sender: FDA-Public Use
  Company Number: US-PFIZER INC-2014015509

PATIENT
  Sex: Male

DRUGS (7)
  1. ZOLOFT [Suspect]
     Dosage: UNK
     Route: 064
     Dates: start: 201004, end: 201107
  2. SERTRALINE HCL [Suspect]
     Dosage: UNK
     Route: 064
     Dates: start: 201004, end: 201107
  3. PRISTIQ [Suspect]
     Dosage: UNK
     Route: 064
  4. CEPHALEXIN [Concomitant]
     Dosage: UNK
     Route: 064
  5. PHENAZOPYRIDINE [Concomitant]
     Dosage: UNK
     Route: 064
  6. MACROBID [Concomitant]
     Dosage: UNK
     Route: 064
  7. PRENATAL VITAMINS [Concomitant]
     Dosage: UNK
     Route: 064

REACTIONS (2)
  - Maternal exposure during pregnancy [Unknown]
  - Craniosynostosis [Unknown]
